FAERS Safety Report 25768375 (Version 1)
Quarter: 2025Q3

REPORT INFORMATION
  Report Type: Spontaneous
  Country: US (occurrence: US)
  Receive Date: 20250905
  Receipt Date: 20250905
  Transmission Date: 20251020
  Serious: No
  Sender: DOMPE FARMACEUTICI
  Company Number: US-FARMAPROD-202506-2109

PATIENT
  Sex: Female

DRUGS (19)
  1. OXERVATE [Suspect]
     Active Substance: CENEGERMIN-BKBJ
     Indication: Neurotrophic keratopathy
     Dates: start: 20250611
  2. OSTEO MD [Concomitant]
  3. VITAMINS [Concomitant]
     Active Substance: VITAMINS
  4. PROBIOTICS NOS [Concomitant]
     Active Substance: PROBIOTICS NOS
  5. RECOVERY PLUS [Concomitant]
  6. FOCUS FACTOR [Concomitant]
  7. REFRESH CLASSIC [Concomitant]
     Active Substance: POLYVINYL ALCOHOL\POVIDONE
  8. RESTASIS [Concomitant]
     Active Substance: CYCLOSPORINE
  9. VITAMIN D3 [Concomitant]
     Active Substance: CHOLECALCIFEROL
  10. VITAMIN B COMPLEX [Concomitant]
     Active Substance: CYANOCOBALAMIN\DEXPANTHENOL\NIACINAMIDE\PYRIDOXINE HYDROCHLORIDE\RIBOFLAVIN 5^-PHOSPHATE SODIUM\THIA
  11. MAGNESIUM CHLORIDE [Concomitant]
     Active Substance: MAGNESIUM CHLORIDE
  12. MAGNESIUM [Concomitant]
     Active Substance: MAGNESIUM
  13. CURCUMIN [Concomitant]
     Active Substance: CURCUMIN
  14. OMEPRAZOLE [Concomitant]
     Active Substance: OMEPRAZOLE
  15. OZEMPIC [Concomitant]
     Active Substance: SEMAGLUTIDE
  16. LOSARTAN POTASSIUM [Concomitant]
     Active Substance: LOSARTAN POTASSIUM
  17. TORSEMIDE [Concomitant]
     Active Substance: TORSEMIDE
  18. BRIMONIDINE [Concomitant]
     Active Substance: BRIMONIDINE TARTRATE
  19. LATANOPROST [Concomitant]
     Active Substance: LATANOPROST

REACTIONS (4)
  - Eye pruritus [Unknown]
  - Eye irritation [Unknown]
  - Vision blurred [Unknown]
  - Visual impairment [Unknown]
